FAERS Safety Report 9356719 (Version 1)
Quarter: 2013Q2

REPORT INFORMATION
  Report Type: Spontaneous
  Country: SG (occurrence: SG)
  Receive Date: 20130619
  Receipt Date: 20130619
  Transmission Date: 20140414
  Serious: Yes (Hospitalization, Other)
  Sender: FDA-Public Use
  Company Number: PHHY2013SG061102

PATIENT
  Age: 35 Year
  Sex: Female

DRUGS (4)
  1. MYFORTIC [Suspect]
     Dosage: UNK
     Dates: start: 201212
  2. TACROLIMUS [Suspect]
     Dosage: UNK
  3. SIROLIMUS [Suspect]
     Dosage: UNK
  4. PREDNISOLONE [Concomitant]
     Dosage: UNK
     Dates: start: 201212

REACTIONS (4)
  - Pneumonitis [Unknown]
  - Kidney fibrosis [Unknown]
  - Nephropathy toxic [Unknown]
  - Glomerular filtration rate decreased [Unknown]
